FAERS Safety Report 7408126-5 (Version None)
Quarter: 2011Q2

REPORT INFORMATION
  Report Type: 
  Country: None (occurrence: None)
  Receive Date: 20110408
  Receipt Date: 20110408
  Transmission Date: 20111010
  Serious: Yes (Other)
  Sender: FDA-Public Use
  Company Number: None

PATIENT
  Age: 50 Year
  Sex: Female
  Weight: 99.7913 kg

DRUGS (2)
  1. LANSOPRAZOLE [Suspect]
     Indication: GASTROOESOPHAGEAL REFLUX DISEASE
     Dosage: 30MG 1X PER DAY PO
     Route: 048
     Dates: start: 20040101, end: 20110201
  2. CYMBALTA [Suspect]
     Indication: DEPRESSION
     Dosage: 60 MG 2X'S A DAY PO
     Route: 048
     Dates: start: 20040101, end: 20110312

REACTIONS (3)
  - DRUG WITHDRAWAL SYNDROME [None]
  - SUICIDAL IDEATION [None]
  - INSOMNIA [None]
